FAERS Safety Report 12857988 (Version 1)
Quarter: 2016Q4

REPORT INFORMATION
  Report Type: Report from Study
  Country: US (occurrence: US)
  Receive Date: 20161018
  Receipt Date: 20161018
  Transmission Date: 20170207
  Serious: No
  Sender: FDA-Public Use
  Company Number: US-SA-2016SA162118

PATIENT
  Age: 34 Year
  Sex: Female

DRUGS (2)
  1. SOLU-MEDROL [Concomitant]
     Active Substance: METHYLPREDNISOLONE SODIUM SUCCINATE
     Route: 042
     Dates: start: 20160829, end: 20160831
  2. LEMTRADA [Suspect]
     Active Substance: ALEMTUZUMAB
     Indication: MULTIPLE SCLEROSIS
     Route: 041
     Dates: start: 20160829, end: 20160901

REACTIONS (19)
  - Cough [Recovered/Resolved]
  - Throat tightness [Not Recovered/Not Resolved]
  - Vomiting [Unknown]
  - Dyspnoea [Recovering/Resolving]
  - Fall [Unknown]
  - Migraine [Not Recovered/Not Resolved]
  - Bleeding time prolonged [Unknown]
  - Oropharyngeal pain [Not Recovered/Not Resolved]
  - Nervousness [Unknown]
  - Laceration [Unknown]
  - Tremor [Not Recovered/Not Resolved]
  - Tearfulness [Unknown]
  - Gait disturbance [Unknown]
  - Condition aggravated [Not Recovered/Not Resolved]
  - Anxiety [Not Recovered/Not Resolved]
  - Wheezing [Recovered/Resolved]
  - Panic attack [Not Recovered/Not Resolved]
  - Pharyngeal oedema [Recovering/Resolving]
  - Rash generalised [Not Recovered/Not Resolved]

NARRATIVE: CASE EVENT DATE: 2016
